FAERS Safety Report 25002854 (Version 1)
Quarter: 2025Q1

REPORT INFORMATION
  Report Type: Spontaneous
  Country: IN (occurrence: IN)
  Receive Date: 20250224
  Receipt Date: 20250224
  Transmission Date: 20250409
  Serious: Yes (Hospitalization)
  Sender: ROCHE
  Company Number: IN-ROCHE-10000210268

PATIENT
  Age: 28 Year
  Sex: Male
  Weight: 56.5 kg

DRUGS (1)
  1. POLIVY [Suspect]
     Active Substance: POLATUZUMAB VEDOTIN-PIIQ
     Indication: Burkitt^s lymphoma
     Route: 042
     Dates: start: 20250120

REACTIONS (2)
  - Pneumonia [Unknown]
  - Epistaxis [Unknown]
